FAERS Safety Report 12619808 (Version 1)
Quarter: 2016Q3

REPORT INFORMATION
  Report Type: Spontaneous
  Country: DE (occurrence: DE)
  Receive Date: 20160803
  Receipt Date: 20160803
  Transmission Date: 20161109
  Serious: Yes (Hospitalization)
  Sender: FDA-Public Use
  Company Number: DE-AMGEN-DEUSP2016098328

PATIENT
  Age: 80 Year
  Sex: Male

DRUGS (13)
  1. AMLODIPINE [Concomitant]
     Active Substance: AMLODIPINE BESYLATE
     Dosage: 5
  2. ESPUMISAN [Concomitant]
     Active Substance: DIMETHICONE
  3. ASPIRIN. [Concomitant]
     Active Substance: ASPIRIN
     Dosage: 100
  4. TORASEMID [Concomitant]
     Active Substance: TORSEMIDE
     Dosage: 5
  5. CORTISON [Concomitant]
     Active Substance: CORTISONE ACETATE
     Dosage: 5 MG, UNK
  6. NEPRESOL [Concomitant]
     Active Substance: DIHYDRALAZINE SULFATE
     Dosage: 12.5
  7. ENALAPRIL [Concomitant]
     Active Substance: ENALAPRIL
     Dosage: 20 MG, UNK
  8. METOPROLOL. [Concomitant]
     Active Substance: METOPROLOL
     Dosage: 95
  9. MOVICOL [Concomitant]
     Active Substance: POLYETHYLENE GLYCOL 3350\POTASSIUM CHLORIDE\SODIUM BICARBONATE\SODIUM CHLORIDE
  10. ENBREL [Suspect]
     Active Substance: ETANERCEPT
     Indication: PSORIATIC ARTHROPATHY
     Dosage: 50 MG, WEEKLY
     Route: 065
     Dates: start: 20150724
  11. PANTOZOL [Concomitant]
     Active Substance: PANTOPRAZOLE SODIUM
     Dosage: 40
  12. SIMVASTATIN. [Concomitant]
     Active Substance: SIMVASTATIN
     Dosage: 20
  13. ADENURIC [Concomitant]
     Active Substance: FEBUXOSTAT
     Dosage: 80

REACTIONS (3)
  - Pulmonary oedema [Unknown]
  - Renal disorder [Unknown]
  - Cardiac disorder [Unknown]
